FAERS Safety Report 6233604-4 (Version None)
Quarter: 2009Q2

REPORT INFORMATION
  Report Type: 
  Country: None (occurrence: None)
  Receive Date: 20090617
  Receipt Date: 20090608
  Transmission Date: 20091009
  Serious: Yes (Hospitalization)
  Sender: FDA-Public Use
  Company Number: US-PFIZER INC-2009224340

PATIENT
  Sex: Male
  Weight: 119 kg

DRUGS (24)
  1. NAPROXEN [Suspect]
     Dosage: UNK
     Route: 048
     Dates: start: 20080827, end: 20090505
  2. BLINDED *PLACEBO [Suspect]
     Dosage: UNK
     Route: 048
     Dates: start: 20080827, end: 20090505
  3. BLINDED CELECOXIB [Suspect]
     Dosage: UNK
     Route: 048
     Dates: start: 20080827, end: 20090505
  4. IBUPROFEN [Suspect]
     Dosage: UNK
     Route: 048
     Dates: start: 20080827, end: 20090505
  5. NAPROXEN [Suspect]
     Dosage: UNK
     Route: 048
     Dates: start: 20080827, end: 20090505
  6. NEXIUM [Concomitant]
     Dosage: 40 MG, 1X/DAY
     Route: 048
     Dates: start: 20080827
  7. FELODIPINE [Concomitant]
     Dosage: UNK
     Route: 048
     Dates: start: 19960101
  8. VESICARE [Concomitant]
     Dosage: UNK
     Route: 048
     Dates: start: 20060216
  9. CLARINEX [Concomitant]
     Dosage: UNK
     Route: 048
     Dates: start: 20001122
  10. ZOCOR [Concomitant]
     Dosage: UNK
     Route: 048
     Dates: start: 20040430
  11. PROZAC [Concomitant]
     Dosage: UNK
     Route: 048
     Dates: start: 20060130
  12. GLUCOPHAGE [Concomitant]
     Dosage: UNK
     Route: 048
     Dates: start: 20060805
  13. GLIPIZIDE [Concomitant]
     Dosage: UNK
     Route: 048
     Dates: start: 20051017
  14. ACTOS [Concomitant]
     Dosage: UNK
     Route: 048
     Dates: start: 20080324
  15. KLONOPIN [Concomitant]
     Dosage: UNK
     Route: 048
     Dates: start: 20060727
  16. FLAXSEED OIL [Concomitant]
     Dosage: UNK
     Route: 048
     Dates: start: 19960101
  17. ESTER-C [Concomitant]
     Dosage: UNK
     Route: 048
     Dates: start: 19960101
  18. LOVAZA [Concomitant]
     Dosage: UNK
     Route: 048
     Dates: start: 19960101
  19. VITAMIN E [Concomitant]
     Dosage: UNK
     Route: 048
     Dates: start: 19960101
  20. MAGNESIUM [Concomitant]
     Dosage: UNK
     Route: 048
     Dates: start: 19960101
  21. CORAL CALCIUM [Concomitant]
     Dosage: UNK
     Route: 048
     Dates: start: 19960101
  22. GENERAL NUTRIENTS/MINERALS/VITAMINS [Concomitant]
     Dosage: UNK
     Route: 048
     Dates: start: 20090404
  23. CO-Q-10 [Concomitant]
     Dosage: UNK
     Route: 048
     Dates: start: 20090404
  24. ASPIRIN [Concomitant]
     Dosage: UNK
     Route: 048
     Dates: start: 19860101

REACTIONS (1)
  - ATRIAL FIBRILLATION [None]
